FAERS Safety Report 17333501 (Version 2)
Quarter: 2020Q1

REPORT INFORMATION
  Report Type: Spontaneous
  Country: NO (occurrence: NO)
  Receive Date: 20200128
  Receipt Date: 20200213
  Transmission Date: 20200409
  Serious: Yes (Other)
  Sender: FDA-Public Use
  Company Number: NO-NAPPMUNDI-GBR-2020-0074548

PATIENT
  Sex: Female

DRUGS (9)
  1. OXYNORM [Suspect]
     Active Substance: OXYCODONE HYDROCHLORIDE
     Dosage: 2000 MG, DAILY
     Route: 065
  2. OXYCONTIN [Suspect]
     Active Substance: OXYCODONE HYDROCHLORIDE
     Dosage: 4920 MG, DAILY
     Route: 065
  3. SOBRIL [Suspect]
     Active Substance: OXAZEPAM
     Indication: PRODUCT USED FOR UNKNOWN INDICATION
     Dosage: 450 MG, DAILY
     Route: 065
  4. OXYCONTIN [Suspect]
     Active Substance: OXYCODONE HYDROCHLORIDE
     Dosage: 9000 MG, DAILY
     Route: 065
  5. SOBRIL [Suspect]
     Active Substance: OXAZEPAM
     Dosage: 170 MG, DAILY
     Route: 065
  6. OXYCONTIN [Suspect]
     Active Substance: OXYCODONE HYDROCHLORIDE
     Indication: SURGERY
     Dosage: 2000 MG, DAILY
     Route: 065
  7. OXYCONTIN [Suspect]
     Active Substance: OXYCODONE HYDROCHLORIDE
     Dosage: 820 MG, DAILY
     Route: 065
  8. SOBRIL [Suspect]
     Active Substance: OXAZEPAM
     Dosage: 500 MG, DAILY
     Route: 065
  9. OXYNORM [Suspect]
     Active Substance: OXYCODONE HYDROCHLORIDE
     Indication: SURGERY
     Dosage: 1480 MG, DAILY
     Route: 065

REACTIONS (13)
  - Oedema peripheral [Unknown]
  - Hyperhidrosis [Unknown]
  - Anxiety [Unknown]
  - Drug abuse [Unknown]
  - Blood pressure abnormal [Unknown]
  - Chills [Unknown]
  - Prescribed overdose [Unknown]
  - Mental disorder [Unknown]
  - Feeling abnormal [Unknown]
  - Impaired work ability [Unknown]
  - Fatigue [Unknown]
  - Gamma-glutamyltransferase increased [Unknown]
  - Constipation [Unknown]
